FAERS Safety Report 6181151-0 (Version None)
Quarter: 2009Q2

REPORT INFORMATION
  Report Type: 
  Country: None (occurrence: None)
  Receive Date: 20090501
  Receipt Date: 20090120
  Transmission Date: 20091009
  Serious: No
  Sender: FDA-Public Use
  Company Number: 2009000267

PATIENT
  Sex: Male
  Weight: 103.8737 kg

DRUGS (3)
  1. TREANDA [Suspect]
     Indication: CHRONIC LYMPHOCYTIC LEUKAEMIA
     Dosage: (CYCLICAL) , INTRAVENOUS : (200 MG, CYCLICAL) , INTRAVENOUS
     Route: 042
     Dates: start: 20080101
  2. TREANDA [Suspect]
     Indication: CHRONIC LYMPHOCYTIC LEUKAEMIA
     Dosage: (CYCLICAL) , INTRAVENOUS : (200 MG, CYCLICAL) , INTRAVENOUS
     Route: 042
     Dates: start: 20090119
  3. UNKNOWN MEDICATION FOR HYPERTENSION (ALL OTHER THERAPEUTIC PRODUCTS) [Concomitant]

REACTIONS (1)
  - RASH [None]
